FAERS Safety Report 7422019-9 (Version None)
Quarter: 2011Q2

REPORT INFORMATION
  Report Type: 
  Country: None (occurrence: None)
  Receive Date: 20110418
  Receipt Date: 20110413
  Transmission Date: 20111010
  Serious: No
  Sender: FDA-Public Use
  Company Number: US-PFIZER INC-2011082157

PATIENT
  Sex: Male

DRUGS (5)
  1. CELEXA [Suspect]
     Indication: HEADACHE
     Dosage: UNK
  2. ABILIFY [Concomitant]
     Dosage: 2 MG, UNK
  3. ZOLOFT [Suspect]
     Indication: HEADACHE
     Dosage: UNK
  4. PRISTIQ [Suspect]
     Dosage: UNK, 1 X/DAY
  5. LEXAPRO [Suspect]
     Indication: HEADACHE
     Dosage: UNK

REACTIONS (5)
  - AGITATION [None]
  - HEADACHE [None]
  - DRUG INEFFECTIVE [None]
  - DRUG INTOLERANCE [None]
  - ERECTILE DYSFUNCTION [None]
